FAERS Safety Report 4730253-1 (Version None)
Quarter: 2005Q3

REPORT INFORMATION
  Report Type: 
  Country: None (occurrence: None)
  Receive Date: 20050801
  Receipt Date: 20050303
  Transmission Date: 20060218
  Serious: Yes (Life-Threatening, Hospitalization)
  Sender: FDA-Public Use
  Company Number: US-ROCHE-397620

PATIENT
  Age: 53 Year
  Sex: Male
  Weight: 72.6 kg

DRUGS (11)
  1. PEG-INTRON [Suspect]
     Route: 058
     Dates: start: 20011011
  2. PEG-INTRON [Suspect]
     Route: 058
     Dates: end: 20050302
  3. PEG-INTRON [Suspect]
     Route: 058
     Dates: start: 20050318, end: 20050530
  4. RIBAVIRIN [Suspect]
     Route: 048
     Dates: start: 20011011
  5. QUININE SULFATE [Suspect]
     Route: 065
     Dates: start: 20041006, end: 20050228
  6. FLOMAX [Concomitant]
  7. MULTIVITAMIN NOS [Concomitant]
     Indication: PROPHYLAXIS
  8. TYLENOL (CAPLET) [Concomitant]
     Indication: HEADACHE
  9. PERCOCET [Concomitant]
     Indication: HERNIA PAIN
     Dates: start: 20030122
  10. BETAMETHASONE CREAM [Concomitant]
     Indication: RASH
     Dates: start: 20040106
  11. LISINOPRIL [Concomitant]
     Indication: HYPERTENSION
     Dates: start: 20040716

REACTIONS (5)
  - CELLULITIS [None]
  - EPISTAXIS [None]
  - THROMBOCYTOPENIA [None]
  - THROMBOSIS [None]
  - WHITE BLOOD CELL COUNT DECREASED [None]
